FAERS Safety Report 16979174 (Version 2)
Quarter: 2020Q1

REPORT INFORMATION
  Report Type: Report from Study
  Country: US (occurrence: US)
  Receive Date: 20191031
  Receipt Date: 20200204
  Transmission Date: 20200409
  Serious: No
  Sender: FDA-Public Use
  Company Number: US-009507513-1910USA006726

PATIENT
  Sex: Male

DRUGS (5)
  1. PEMBROLIZUMAB. [Suspect]
     Active Substance: PEMBROLIZUMAB
     Indication: NON-SMALL CELL LUNG CANCER
     Dosage: 200 MILLIGRAM, Q3W(EVERY 3 WEEK)
     Route: 042
     Dates: start: 201910
  2. VENTOLIN [Concomitant]
     Active Substance: ALBUTEROL SULFATE
     Indication: RESPIRATORY DISORDER
     Dosage: UNK
  3. PREDNISONE. [Interacting]
     Active Substance: PREDNISONE
     Dosage: 60 MILLIGRAM, QM
  4. ADVAIR HFA [Concomitant]
     Active Substance: FLUTICASONE PROPIONATE\SALMETEROL XINAFOATE
     Indication: RESPIRATORY DISORDER
     Dosage: UNK
  5. THERAPY UNSPECIFIED [Suspect]
     Active Substance: UNSPECIFIED INGREDIENT
     Dosage: UNK
     Dates: start: 2010

REACTIONS (9)
  - Fatigue [Recovering/Resolving]
  - Intentional underdose [Unknown]
  - Energy increased [Recovered/Resolved]
  - Therapeutic response unexpected [Unknown]
  - Asthenia [Recovering/Resolving]
  - Adverse event [Unknown]
  - Lung disorder [Unknown]
  - Headache [Recovering/Resolving]
  - Drug interaction [Unknown]

NARRATIVE: CASE EVENT DATE: 2010
